FAERS Safety Report 25198683 (Version 1)
Quarter: 2025Q2

REPORT INFORMATION
  Report Type: Spontaneous
  Country: ES (occurrence: ES)
  Receive Date: 20250415
  Receipt Date: 20250415
  Transmission Date: 20250717
  Serious: Yes (Hospitalization)
  Sender: MYLAN
  Company Number: None

PATIENT
  Age: 82 Year
  Sex: Male

DRUGS (7)
  1. GABAPENTIN [Interacting]
     Active Substance: GABAPENTIN
     Indication: Intervertebral disc protrusion
     Dosage: 300 MILLIGRAM, BID (1 LUNCH, 1 BED TIME)
     Dates: start: 20240624, end: 20241218
  2. ENALAPRIL MALEATE\HYDROCHLOROTHIAZIDE [Interacting]
     Active Substance: ENALAPRIL MALEATE\HYDROCHLOROTHIAZIDE
     Indication: Hypertension
     Dosage: 1 DOSAGE FORM, QD (1 TABLET EVERY 24 HOURS)
     Dates: start: 20241212, end: 20241218
  3. ENALAPRIL [Concomitant]
     Active Substance: ENALAPRIL
     Indication: Hypertension
     Dosage: 5 MILLIGRAM, BID
     Dates: start: 20241122, end: 20241127
  4. ENALAPRIL [Concomitant]
     Active Substance: ENALAPRIL
     Dosage: 10 MILLIGRAM, BID
     Dates: start: 20241127, end: 20241212
  5. ENALAPRIL [Concomitant]
     Active Substance: ENALAPRIL
     Dates: start: 20241212, end: 20241220
  6. ENALAPRIL [Concomitant]
     Active Substance: ENALAPRIL
     Dosage: 10 MILLIGRAM, QD
     Dates: start: 20241220
  7. METAMIZOL [Concomitant]
     Active Substance: METAMIZOLE SODIUM
     Indication: Back pain
     Dates: start: 20241204, end: 20241218

REACTIONS (3)
  - Syncope [Recovered/Resolved]
  - Hyponatraemia [Recovered/Resolved]
  - Drug interaction [Unknown]

NARRATIVE: CASE EVENT DATE: 20241218
